FAERS Safety Report 8214004-4 (Version None)
Quarter: 2012Q1

REPORT INFORMATION
  Report Type: 
  Country: None (occurrence: None)
  Receive Date: 20120316
  Receipt Date: 20120314
  Transmission Date: 20120608
  Serious: Yes (Death, Other)
  Sender: FDA-Public Use
  Company Number: US-PFIZER INC-2012067895

PATIENT
  Sex: Male

DRUGS (2)
  1. WARFARIN SODIUM [Suspect]
     Dosage: UNK
  2. CELEBREX [Suspect]
     Dosage: UNK
     Dates: start: 20120101

REACTIONS (1)
  - MYOCARDIAL INFARCTION [None]
